FAERS Safety Report 8059642-7 (Version None)
Quarter: 2012Q1

REPORT INFORMATION
  Report Type: 
  Country: None (occurrence: None)
  Receive Date: 20120120
  Receipt Date: 20120113
  Transmission Date: 20120608
  Serious: Yes (Death, Other)
  Sender: FDA-Public Use
  Company Number: PHHY2012US003085

PATIENT

DRUGS (2)
  1. IMATINIB MESYLATE [Suspect]
  2. DASATINIB [Suspect]

REACTIONS (4)
  - RECTAL CANCER [None]
  - NEOPLASM MALIGNANT [None]
  - CHRONIC MYELOID LEUKAEMIA [None]
  - THERAPEUTIC RESPONSE DECREASED [None]
